FAERS Safety Report 8256475-3 (Version None)
Quarter: 2012Q2

REPORT INFORMATION
  Report Type: 
  Country: None (occurrence: None)
  Receive Date: 20120403
  Receipt Date: 20120326
  Transmission Date: 20120825
  Serious: Yes (Hospitalization)
  Sender: FDA-Public Use
  Company Number: JP-AMGEN-JPNCT2012015993

PATIENT
  Age: 69 Year
  Sex: Female
  Weight: 69 kg

DRUGS (21)
  1. PANITUMUMAB [Suspect]
     Dosage: 6 MG/KG, Q2WK
     Route: 041
     Dates: start: 20101214, end: 20101214
  2. PANITUMUMAB [Suspect]
     Dosage: 6 MG/KG, Q2WK
     Route: 041
     Dates: start: 20110419, end: 20110419
  3. PANITUMUMAB [Suspect]
     Dosage: 6 MG/KG, Q2WK
     Route: 041
     Dates: start: 20101116, end: 20101116
  4. PANITUMUMAB [Suspect]
     Dosage: 6 MG/KG, Q2WK
     Route: 041
     Dates: start: 20110823, end: 20110823
  5. PANITUMUMAB [Suspect]
     Dosage: 6 MG/KG, Q2WK
     Route: 041
     Dates: start: 20111101
  6. CORTICOSTEROIDS [Concomitant]
     Indication: PROPHYLAXIS
     Dosage: UNK
     Route: 065
  7. ACETAMINOPHEN [Concomitant]
     Dosage: UNK
     Route: 048
  8. PANITUMUMAB [Suspect]
     Dosage: 6 MG/KG, Q2WK
     Route: 041
     Dates: start: 20110201, end: 20110201
  9. PANITUMUMAB [Suspect]
     Dosage: 6 MG/KG, Q2WK
     Route: 041
     Dates: start: 20110525, end: 20110525
  10. SENNAL [Concomitant]
     Indication: CONSTIPATION
     Dosage: UNK
     Route: 048
  11. PANITUMUMAB [Suspect]
     Dosage: 6 MG/KG, Q2WK
     Route: 041
     Dates: start: 20110705, end: 20110705
  12. ANTIHISTAMINES [Concomitant]
     Indication: PROPHYLAXIS
     Dosage: UNK
     Route: 065
  13. SEROTONE [Concomitant]
     Dosage: UNK
     Route: 042
  14. PANITUMUMAB [Suspect]
     Indication: COLORECTAL CANCER
     Dosage: 6 MG/KG, Q2WK
     Route: 041
     Dates: start: 20101013, end: 20101013
  15. TOPOTECAN [Suspect]
     Indication: COLORECTAL CANCER
     Dosage: 240 MG, Q2WK
     Route: 041
     Dates: start: 20101013, end: 20110823
  16. FLUOROURACIL [Suspect]
     Indication: COLORECTAL CANCER
     Route: 040
     Dates: start: 20101013, end: 20110823
  17. FLUOROURACIL [Suspect]
     Dosage: 4000 MG, Q2WK
     Route: 041
     Dates: start: 20101013, end: 20110823
  18. ISOVORIN [Suspect]
     Indication: COLORECTAL CANCER
     Dosage: 325 MG, Q2WK
     Route: 041
     Dates: start: 20101013, end: 20110823
  19. DECADRON [Concomitant]
     Dosage: UNK
     Route: 042
  20. PANITUMUMAB [Suspect]
     Dosage: 6 MG/KG, Q2WK
     Route: 041
     Dates: start: 20110308, end: 20110308
  21. APHTASOLON [Concomitant]
     Dosage: UNK
     Route: 062

REACTIONS (7)
  - HYPOTENSION [None]
  - STOMATITIS [None]
  - NEUTROPENIA [None]
  - DIARRHOEA [None]
  - ANGINA PECTORIS [None]
  - BRADYCARDIA [None]
  - LOSS OF CONSCIOUSNESS [None]
